FAERS Safety Report 16400553 (Version 1)
Quarter: 2019Q2

REPORT INFORMATION
  Report Type: Spontaneous
  Country: US (occurrence: US)
  Receive Date: 20190606
  Receipt Date: 20190606
  Transmission Date: 20190711
  Serious: Yes (Hospitalization, Other)
  Sender: FDA-Public Use
  Company Number: US-CATALYST PHARMACEUTICALS, INC-2019CAT00172

PATIENT
  Age: 63 Year
  Sex: Female
  Weight: 87.53 kg

DRUGS (16)
  1. IRON SUPPLEMENT [Concomitant]
     Active Substance: IRON
  2. PREDNISONE. [Suspect]
     Active Substance: PREDNISONE
     Dosage: UNK
     Dates: start: 2011
  3. SYNTHROID [Concomitant]
     Active Substance: LEVOTHYROXINE SODIUM
  4. FISH OIL [Concomitant]
     Active Substance: FISH OIL
  5. DYAZIDE [Concomitant]
     Active Substance: HYDROCHLOROTHIAZIDE\TRIAMTERENE
  6. FIRDAPSE [Suspect]
     Active Substance: AMIFAMPRIDINE
     Indication: MYASTHENIC SYNDROME
     Dosage: 20 MG, EVERY 4 HOURS WHILE AWAKE
     Route: 048
     Dates: start: 201902
  7. VITAMIN C [Concomitant]
     Active Substance: ASCORBIC ACID
  8. CRANBERRY. [Concomitant]
     Active Substance: CRANBERRY
  9. MAGNESIUM [Concomitant]
     Active Substance: MAGNESIUM
  10. MULTIVITAMIN [Concomitant]
     Active Substance: VITAMINS
  11. CALCIUM AND VITAMIN D [Concomitant]
     Active Substance: CALCIUM\VITAMIN D
  12. PREDNISONE. [Suspect]
     Active Substance: PREDNISONE
     Dosage: 5 MG, 1X/DAY
  13. ^DIAZOLINE^ [Concomitant]
  14. MESTINON [Concomitant]
     Active Substance: PYRIDOSTIGMINE BROMIDE
     Dosage: 60 MG, EVERY 4 HOURS WHILE AWAKE
  15. POTASSIUM [Concomitant]
     Active Substance: POTASSIUM
  16. VITAMIN B12 [Concomitant]
     Active Substance: CYANOCOBALAMIN

REACTIONS (6)
  - Bone disorder [Not Recovered/Not Resolved]
  - Ulcer haemorrhage [Recovering/Resolving]
  - Pelvic fracture [Recovering/Resolving]
  - Diplegia [Recovering/Resolving]
  - Loss of consciousness [Recovered/Resolved]
  - Fall [Recovering/Resolving]

NARRATIVE: CASE EVENT DATE: 2019
